FAERS Safety Report 21612222 (Version 3)
Quarter: 2022Q4

REPORT INFORMATION
  Report Type: Report from Study
  Country: TW (occurrence: TW)
  Receive Date: 20221118
  Receipt Date: 20221213
  Transmission Date: 20230113
  Serious: Yes (Hospitalization, Other)
  Sender: FDA-Public Use
  Company Number: TW-ABBVIE-4202785

PATIENT
  Sex: Male

DRUGS (4)
  1. SKYRIZI [Suspect]
     Active Substance: RISANKIZUMAB-RZAA
     Indication: Psoriasis
     Route: 058
     Dates: start: 20210609, end: 20221123
  2. HUMIRA [Suspect]
     Active Substance: ADALIMUMAB
     Indication: Psoriasis
     Route: 058
     Dates: start: 20180125
  3. DAIVOBET [Concomitant]
     Active Substance: BETAMETHASONE DIPROPIONATE\CALCIPOTRIENE
     Indication: Psoriasis
     Dosage: AS MUCH AS NEEDED
  4. Cisplatin and 5-FU [Concomitant]
     Indication: Glottis carcinoma
     Dates: start: 20221028, end: 20221101

REACTIONS (5)
  - Laryngeal squamous cell carcinoma [Unknown]
  - Pneumonitis [Unknown]
  - Oesophageal carcinoma [Unknown]
  - Vocal cord thickening [Unknown]
  - Lung opacity [Unknown]

NARRATIVE: CASE EVENT DATE: 20221005
